FAERS Safety Report 24211003 (Version 1)
Quarter: 2024Q3

REPORT INFORMATION
  Report Type: Report from Study
  Country: NL (occurrence: NL)
  Receive Date: 20240814
  Receipt Date: 20240814
  Transmission Date: 20241017
  Serious: Yes (Hospitalization)
  Sender: BIOVITRUM
  Company Number: NL-AstraZeneca-2023A086391

PATIENT
  Sex: Male
  Weight: 5.5 kg

DRUGS (1)
  1. SYNAGIS [Suspect]
     Active Substance: PALIVIZUMAB
     Indication: Product used for unknown indication
     Dosage: MONTHLY
     Route: 030
     Dates: start: 20230215

REACTIONS (2)
  - Illness [Recovered/Resolved]
  - Rhinorrhoea [Not Recovered/Not Resolved]
